FAERS Safety Report 4975103-3 (Version None)
Quarter: 2006Q2

REPORT INFORMATION
  Report Type: 
  Country: None (occurrence: None)
  Receive Date: 20060418
  Receipt Date: 20060404
  Transmission Date: 20061013
  Serious: Yes (Hospitalization, Disabling, Other)
  Sender: FDA-Public Use
  Company Number: CA-AMGEN-US175060

PATIENT
  Sex: Female
  Weight: 80 kg

DRUGS (11)
  1. NEULASTA [Suspect]
     Indication: CHEMOTHERAPY
     Route: 058
     Dates: start: 20060125, end: 20060208
  2. DOXORUBICIN HCL [Suspect]
     Route: 042
     Dates: start: 20060124, end: 20060207
  3. DOXORUBICIN HCL [Suspect]
     Route: 042
     Dates: start: 20060307, end: 20060328
  4. CYCLOPHOSPHAMIDE [Concomitant]
     Route: 042
     Dates: start: 20060124, end: 20060207
  5. CYCLOPHOSPHAMIDE [Concomitant]
     Route: 042
     Dates: start: 20060307, end: 20060328
  6. NEUPOGEN [Concomitant]
     Route: 058
     Dates: start: 20060308, end: 20060402
  7. DEXAMETHASONE [Concomitant]
     Route: 042
     Dates: start: 20060124, end: 20060207
  8. DEXAMETHASONE [Concomitant]
     Route: 042
     Dates: start: 20060307, end: 20060328
  9. ONDANSETRON [Concomitant]
     Route: 042
     Dates: start: 20060124, end: 20060207
  10. ONDANSETRON [Concomitant]
     Route: 042
     Dates: start: 20060307, end: 20060320
  11. TAXOL [Concomitant]

REACTIONS (6)
  - BURNING SENSATION [None]
  - ERYTHEMA [None]
  - FEBRILE NEUTROPENIA [None]
  - MUCOSAL INFLAMMATION [None]
  - MUSCULOSKELETAL STIFFNESS [None]
  - OEDEMA PERIPHERAL [None]
